FAERS Safety Report 5571888-6 (Version None)
Quarter: 2007Q4

REPORT INFORMATION
  Report Type: 
  Country: None (occurrence: None)
  Receive Date: 20071221
  Receipt Date: 20071211
  Transmission Date: 20080405
  Serious: Yes (Other)
  Sender: FDA-Public Use
  Company Number: US-RANBAXY-2007US-06881

PATIENT

DRUGS (3)
  1. ISOTRETINOIN [Suspect]
     Indication: DRUG USE FOR UNKNOWN INDICATION
     Dosage: 30 MG, QD
     Route: 048
     Dates: start: 20070108, end: 20070207
  2. ISOTRETINOIN [Suspect]
     Dosage: 20 MG, BID
     Route: 048
     Dates: start: 20070315, end: 20070410
  3. YASMIN [Concomitant]
     Indication: ORAL CONTRACEPTION
     Route: 048

REACTIONS (3)
  - BACK PAIN [None]
  - DRY SKIN [None]
  - PREGNANCY [None]
